FAERS Safety Report 10070867 (Version 1)
Quarter: 2014Q2

REPORT INFORMATION
  Report Type: Spontaneous
  Country: CR (occurrence: CR)
  Receive Date: 20140410
  Receipt Date: 20140410
  Transmission Date: 20141212
  Serious: Yes (Other)
  Sender: FDA-Public Use
  Company Number: PHHY2014CR043727

PATIENT
  Age: 86 Year
  Sex: Female

DRUGS (2)
  1. ACLASTA [Suspect]
     Dosage: UNK UKN, UNK
     Route: 042
  2. CALCIUM CHANNEL BLOCKERS [Concomitant]
     Dosage: UNK UKN, UNK

REACTIONS (5)
  - Bradycardia [Unknown]
  - Electrocardiogram QT prolonged [Unknown]
  - Sinus arrest [Unknown]
  - Hypotension [Unknown]
  - Hypocalcaemia [Unknown]
